FAERS Safety Report 4732251-0 (Version None)
Quarter: 2005Q3

REPORT INFORMATION
  Report Type: 
  Country: None (occurrence: None)
  Receive Date: 20050725
  Receipt Date: 20040720
  Transmission Date: 20060218
  Serious: Yes (Death)
  Sender: FDA-Public Use
  Company Number: USA-2004-0016099

PATIENT
  Age: 50 Year
  Sex: Male
  Weight: 65.3 kg

DRUGS (9)
  1. MORPHINE SULFATE [Suspect]
     Dosage: 30 MG
  2. CARISOPRODOL (CARISOPRODOL) [Suspect]
  3. MIRTAZAPINE [Suspect]
  4. NEFAZODONE HCL [Suspect]
  5. CAFFEINE (CAFFEINE) [Suspect]
  6. DIAZEPAM [Suspect]
  7. GABAPENTIN [Suspect]
  8. NICOTINE [Suspect]
  9. TEMAZEPAM [Suspect]

REACTIONS (1)
  - ACCIDENTAL OVERDOSE [None]
